FAERS Safety Report 10236902 (Version 3)
Quarter: 2014Q4

REPORT INFORMATION
  Report Type: Spontaneous
  Country: IT (occurrence: IT)
  Receive Date: 20140613
  Receipt Date: 20141009
  Transmission Date: 20150528
  Serious: Yes (Other)
  Sender: FDA-Public Use
  Company Number: IT-BAXTER-2014BAX029708

PATIENT
  Age: 36 Year
  Sex: Female

DRUGS (12)
  1. LYRICA [Suspect]
     Active Substance: PREGABALIN
     Indication: PAIN
     Route: 048
     Dates: start: 20140427, end: 20140604
  2. PANTOPRAZOLE [Concomitant]
     Active Substance: PANTOPRAZOLE SODIUM
     Indication: PRODUCT USED FOR UNKNOWN INDICATION
     Route: 048
  3. ENOXAPARIN [Concomitant]
     Active Substance: ENOXAPARIN
     Indication: PRODUCT USED FOR UNKNOWN INDICATION
     Dosage: 6000 UNITS
     Route: 058
  4. TARGIN [Suspect]
     Active Substance: NALOXONE HYDROCHLORIDE\OXYCODONE HYDROCHLORIDE
     Indication: PAIN
     Route: 048
     Dates: start: 20140429, end: 20140604
  5. UROMITEXAN [Suspect]
     Active Substance: MESNA
     Indication: METASTASES TO LUNG
  6. KETOROLAC [Concomitant]
     Active Substance: KETOROLAC\KETOROLAC TROMETHAMINE
     Indication: PRODUCT USED FOR UNKNOWN INDICATION
     Route: 048
  7. UROMITEXAN [Suspect]
     Active Substance: MESNA
     Indication: CHONDROSARCOMA
     Dosage: 3G/SQUARE METER
     Route: 042
     Dates: start: 20140531, end: 20140603
  8. SOLDESAM [Concomitant]
     Active Substance: DEXAMETHASONE
     Indication: PREMEDICATION
     Route: 042
     Dates: start: 20140531, end: 20140603
  9. RANITIDINE [Concomitant]
     Active Substance: RANITIDINE\RANITIDINE HYDROCHLORIDE
     Indication: PREMEDICATION
     Route: 042
     Dates: start: 20140531, end: 20140603
  10. HOLOXAN [Suspect]
     Active Substance: IFOSFAMIDE
     Indication: CHONDROSARCOMA
     Dosage: 3G/SQUARE METER
     Route: 042
     Dates: start: 20140531, end: 20140603
  11. HOLOXAN [Suspect]
     Active Substance: IFOSFAMIDE
     Indication: METASTASES TO LUNG
  12. KYTRIL [Concomitant]
     Active Substance: GRANISETRON HYDROCHLORIDE
     Indication: PREMEDICATION
     Route: 042
     Dates: start: 20140531, end: 20140603

REACTIONS (2)
  - Sopor [Recovered/Resolved]
  - Apraxia [Recovered/Resolved]

NARRATIVE: CASE EVENT DATE: 20140603
